FAERS Safety Report 8776658 (Version 1)
Quarter: 2012Q4

REPORT INFORMATION
  Report Type: 
  Country: GB (occurrence: GB)
  Receive Date: 20120911
  Receipt Date: 20120911
  Transmission Date: 20130627
  Serious: Yes (Disabling, Other)
  Sender: FDA-Public Use
  Company Number: GB-GE HEALTHCARE MEDICAL DIAGNOSTICS-OSCN-PR-1209S-0136

PATIENT
  Sex: Male

DRUGS (2)
  1. OMNISCAN [Suspect]
     Indication: MUSCLE STRAIN
     Route: 065
     Dates: start: 200805, end: 200805
  2. OMNISCAN [Suspect]
     Indication: DIAGNOSTIC PROCEDURE

REACTIONS (6)
  - Hypersensitivity [Recovered/Resolved with Sequelae]
  - Pain [Unknown]
  - Oedema peripheral [Unknown]
  - Skin discolouration [Unknown]
  - Weight decreased [Unknown]
  - Walking disability [Not Recovered/Not Resolved]
